FAERS Safety Report 8980139 (Version 1)
Quarter: 2012Q4

REPORT INFORMATION
  Report Type: 
  Country: ES (occurrence: ES)
  Receive Date: 20121221
  Receipt Date: 20121221
  Transmission Date: 20130627
  Serious: Yes (Other)
  Sender: FDA-Public Use
  Company Number: PHHY2012ES117245

PATIENT
  Age: 7 Year
  Sex: Female

DRUGS (1)
  1. OMNITROPE [Suspect]
     Indication: TURNER^S SYNDROME
     Dosage: 1 mg, QD
     Route: 058
     Dates: start: 20121024

REACTIONS (1)
  - Toxic skin eruption [Unknown]
